FAERS Safety Report 7590104-7 (Version None)
Quarter: 2011Q3

REPORT INFORMATION
  Report Type: 
  Country: None (occurrence: None)
  Receive Date: 20110705
  Receipt Date: 20110624
  Transmission Date: 20111222
  Serious: Yes (Hospitalization)
  Sender: FDA-Public Use
  Company Number: B0728549A

PATIENT
  Age: 84 Year
  Sex: Female

DRUGS (3)
  1. CELESTONE [Suspect]
     Indication: CHRONIC OBSTRUCTIVE PULMONARY DISEASE
     Route: 048
     Dates: end: 20110517
  2. VENTOLIN [Suspect]
     Indication: CHRONIC OBSTRUCTIVE PULMONARY DISEASE
     Route: 055
  3. FLUTICASONE PROPIONATE [Suspect]
     Indication: CHRONIC OBSTRUCTIVE PULMONARY DISEASE
     Route: 055
     Dates: end: 20110517

REACTIONS (6)
  - FAECAL INCONTINENCE [None]
  - HYPOKALAEMIA [None]
  - MALAISE [None]
  - TRANSIENT GLOBAL AMNESIA [None]
  - DECREASED EYE CONTACT [None]
  - URINARY INCONTINENCE [None]
